FAERS Safety Report 7254510-2 (Version None)
Quarter: 2011Q1

REPORT INFORMATION
  Report Type: 
  Country: None (occurrence: None)
  Receive Date: 20110129
  Receipt Date: 20100422
  Transmission Date: 20110831
  Serious: No
  Sender: FDA-Public Use
  Company Number: US-ABBOTT-10P-163-0641250-00

PATIENT
  Sex: Male
  Weight: 106.69 kg

DRUGS (5)
  1. BENICAR HCT [Concomitant]
     Indication: HYPERTENSION
     Dosage: 40/12.5 DAILY
  2. PROTONIX [Concomitant]
     Indication: BARRETT'S OESOPHAGUS
  3. HUMIRA [Suspect]
     Indication: RHEUMATOID ARTHRITIS
     Route: 058
  4. METHOTREXATE [Concomitant]
     Indication: PRODUCT USED FOR UNKNOWN INDICATION
  5. FOLIC ACID [Concomitant]
     Indication: PRODUCT USED FOR UNKNOWN INDICATION

REACTIONS (2)
  - INJECTION SITE HAEMORRHAGE [None]
  - INJECTION SITE NODULE [None]
